FAERS Safety Report 15588141 (Version 2)
Quarter: 2022Q4

REPORT INFORMATION
  Report Type: Report from Study
  Country: US (occurrence: US)
  Receive Date: 20181105
  Receipt Date: 20221027
  Transmission Date: 20230113
  Serious: Yes (Hospitalization, Other)
  Sender: FDA-Public Use
  Company Number: US-SHIRE-US201841673

PATIENT
  Age: 75 Year
  Sex: Male

DRUGS (2)
  1. VELAGLUCERASE ALFA [Suspect]
     Active Substance: VELAGLUCERASE ALFA
     Indication: Gaucher^s disease type I
     Dosage: UNK
     Route: 065
     Dates: start: 20100528
  2. VELAGLUCERASE ALFA [Suspect]
     Active Substance: VELAGLUCERASE ALFA
     Dosage: 5 DOSAGE FORM, 2/MONTH
     Route: 042
     Dates: start: 20100707

REACTIONS (2)
  - Prostatomegaly [Unknown]
  - Retinal detachment [Recovering/Resolving]

NARRATIVE: CASE EVENT DATE: 20181013
